FAERS Safety Report 6321528-3 (Version None)
Quarter: 2009Q3

REPORT INFORMATION
  Report Type: 
  Country: None (occurrence: None)
  Receive Date: 20090824
  Receipt Date: 20070711
  Transmission Date: 20100115
  Serious: Yes (Other)
  Sender: FDA-Public Use
  Company Number: US-ASTRAZENECA-2007UW11092

PATIENT
  Age: 18666 Day
  Sex: Male
  Weight: 111.1 kg

DRUGS (15)
  1. SEROQUEL [Suspect]
     Indication: BIPOLAR DISORDER
     Route: 048
     Dates: start: 20020308, end: 20070208
  2. SEROQUEL [Suspect]
     Dosage: 400 - 1000 MG DAILY
     Route: 048
     Dates: start: 20040813
  3. INDERAL LA [Concomitant]
     Dosage: 60 - 80 MG DAILY
     Route: 048
     Dates: start: 20040813
  4. TOPAMAX [Concomitant]
     Dosage: 4 0 - 100 MG AT NIGHT
     Route: 048
     Dates: start: 20040101
  5. KLONOPIN [Concomitant]
     Dosage: 1 - 2 MG DAILY
     Route: 048
     Dates: start: 20040101
  6. REQUIP [Concomitant]
     Dosage: 1.5 - 2.5 MG DAILY
     Route: 048
     Dates: start: 20050411
  7. ALTACE [Concomitant]
     Route: 048
     Dates: start: 20050411
  8. PROZAC [Concomitant]
     Dosage: 10 - 40 MG DAILY
     Route: 048
     Dates: start: 20040101
  9. TRAZODONE HCL [Concomitant]
     Dosage: 100 - 200 MG DAILY
     Route: 048
     Dates: start: 20040813
  10. EFFEXOR XR [Concomitant]
     Route: 048
     Dates: start: 20040813
  11. XANAX [Concomitant]
     Route: 048
     Dates: start: 20040813
  12. ZYPREXA [Concomitant]
     Dates: start: 20040101
  13. ZOLOFT [Concomitant]
     Dates: start: 20040101
  14. REMERON [Concomitant]
     Route: 048
     Dates: start: 20070315
  15. BUSPAR [Concomitant]
     Route: 048
     Dates: start: 20070315

REACTIONS (8)
  - DIABETES MELLITUS [None]
  - DIABETES MELLITUS INADEQUATE CONTROL [None]
  - DIABETIC FOOT [None]
  - DIABETIC KETOACIDOSIS [None]
  - DIABETIC NEUROPATHY [None]
  - OBESITY [None]
  - OVERWEIGHT [None]
  - TYPE 2 DIABETES MELLITUS [None]
